FAERS Safety Report 5455288-5 (Version None)
Quarter: 2007Q3

REPORT INFORMATION
  Report Type: 
  Country: None (occurrence: None)
  Receive Date: 20070913
  Receipt Date: 20070913
  Transmission Date: 20080115
  Serious: Yes (Hospitalization)
  Sender: FDA-Public Use
  Company Number: None

PATIENT
  Age: 67 Year
  Sex: Male

DRUGS (1)
  1. INDOMETHACIN [Suspect]
     Indication: GOUT
     Dosage: 25MG BID PO
     Route: 048
     Dates: start: 20070601, end: 20070908

REACTIONS (3)
  - ANAEMIA [None]
  - DUODENAL ULCER [None]
  - GASTRIC HAEMORRHAGE [None]
